FAERS Safety Report 9338355 (Version 1)
Quarter: 2013Q2

REPORT INFORMATION
  Report Type: Spontaneous
  Country: US (occurrence: US)
  Receive Date: 20130610
  Receipt Date: 20130610
  Transmission Date: 20140414
  Serious: No
  Sender: FDA-Public Use
  Company Number: US-PFIZER INC-2013172591

PATIENT
  Sex: Female

DRUGS (1)
  1. LYRICA [Suspect]
     Dosage: UNK

REACTIONS (5)
  - Intentional drug misuse [Unknown]
  - Insomnia [Unknown]
  - Headache [Unknown]
  - Back pain [Unknown]
  - Pain in extremity [Unknown]
